FAERS Safety Report 15588040 (Version 3)
Quarter: 2018Q4

REPORT INFORMATION
  Report Type: Spontaneous
  Country: US (occurrence: US)
  Receive Date: 20181105
  Receipt Date: 20181227
  Transmission Date: 20190205
  Serious: No
  Sender: FDA-Public Use
  Company Number: US-PFIZER INC-2018442668

PATIENT
  Age: 74 Year
  Sex: Male

DRUGS (12)
  1. LYRICA [Suspect]
     Active Substance: PREGABALIN
     Indication: PAIN
     Dosage: 25 MG, UNK
     Dates: start: 2015
  2. GEMFIBROZIL. [Concomitant]
     Active Substance: GEMFIBROZIL
     Dosage: UNK
  3. ALLOPURINOL. [Concomitant]
     Active Substance: ALLOPURINOL
     Dosage: UNK
  4. LYRICA [Suspect]
     Active Substance: PREGABALIN
     Dosage: 125 MG, UNK
  5. LYRICA [Suspect]
     Active Substance: PREGABALIN
     Dosage: 150 MG, 3X/DAY
  6. CLONAZEPAM. [Concomitant]
     Active Substance: CLONAZEPAM
     Dosage: UNK
  7. LYRICA [Suspect]
     Active Substance: PREGABALIN
     Indication: NEUROPATHY PERIPHERAL
     Dosage: 100 MG, UNK
  8. MELOXICAM. [Concomitant]
     Active Substance: MELOXICAM
     Dosage: UNK
  9. LYRICA [Suspect]
     Active Substance: PREGABALIN
     Dosage: 200 MG, UNK (TWO PILLS)
  10. TRAZODONE [Concomitant]
     Active Substance: TRAZODONE HYDROCHLORIDE
     Dosage: UNK
  11. TERAZOSIN [Concomitant]
     Active Substance: TERAZOSIN\TERAZOSIN HYDROCHLORIDE
     Dosage: UNK
  12. LYRICA [Suspect]
     Active Substance: PREGABALIN
     Dosage: 150 MG, UNK

REACTIONS (3)
  - Pain [Not Recovered/Not Resolved]
  - Somnolence [Not Recovered/Not Resolved]
  - Discomfort [Not Recovered/Not Resolved]

NARRATIVE: CASE EVENT DATE: 2015
